FAERS Safety Report 9756145 (Version 3)
Quarter: 2013Q4

REPORT INFORMATION
  Report Type: Report from Study
  Country: NL (occurrence: NL)
  Receive Date: 20131213
  Receipt Date: 20131227
  Transmission Date: 20140711
  Serious: Yes (Hospitalization)
  Sender: FDA-Public Use
  Company Number: NL-ONYX-2013-1947

PATIENT
  Age: 62 Year
  Sex: Male
  Weight: 184 kg

DRUGS (10)
  1. CARFILZOMIB [Suspect]
     Indication: PLASMA CELL MYELOMA
     Route: 042
     Dates: start: 20131029, end: 20131030
  2. CARFILZOMIB [Suspect]
     Route: 042
     Dates: start: 20131105, end: 20131105
  3. CARFILZOMIB [Suspect]
     Route: 042
     Dates: start: 20131112, end: 20131113
  4. THALIDOMIDE [Concomitant]
     Indication: PLASMA CELL MYELOMA
     Route: 048
     Dates: start: 20131029, end: 20131124
  5. DEXAMETHASONE [Concomitant]
     Indication: PLASMA CELL MYELOMA
     Route: 048
     Dates: start: 20131029, end: 20131113
  6. ACICLOVIR [Concomitant]
     Indication: ANTIVIRAL PROPHYLAXIS
     Route: 048
     Dates: start: 20131028
  7. PANTOPRAZOL [Concomitant]
     Indication: GASTROOESOPHAGEAL REFLUX PROPHYLAXIS
     Route: 048
     Dates: start: 20131023
  8. ASCORB [Concomitant]
     Indication: THROMBOSIS PROPHYLAXIS
     Route: 048
     Dates: start: 20131023
  9. CALCIUM CARBONATE/COLECALCIFEROL [Concomitant]
     Indication: MINERAL SUPPLEMENTATION
     Route: 048
     Dates: start: 201310
  10. FENETICILLINE [Concomitant]
     Indication: ANTIBIOTIC PROPHYLAXIS
     Route: 048
     Dates: start: 20131023

REACTIONS (1)
  - Hypersensitivity [Recovered/Resolved]
